FAERS Safety Report 7735714-9 (Version None)
Quarter: 2011Q3

REPORT INFORMATION
  Report Type: 
  Country: None (occurrence: None)
  Receive Date: 20110908
  Receipt Date: 20110829
  Transmission Date: 20111222
  Serious: Yes (Hospitalization)
  Sender: FDA-Public Use
  Company Number: US-BIOGENIDEC-2011BI018907

PATIENT
  Age: 46 Year
  Sex: Female
  Weight: 73 kg

DRUGS (4)
  1. NEURONTIN [Concomitant]
  2. TYSABRI [Suspect]
     Route: 042
     Dates: start: 20110401
  3. TYSABRI [Suspect]
     Indication: MULTIPLE SCLEROSIS
     Route: 042
     Dates: start: 20081217, end: 20101201
  4. AMPYRA [Concomitant]
     Route: 048

REACTIONS (4)
  - FALL [None]
  - MUSCLE SPASMS [None]
  - FOOT FRACTURE [None]
  - STAPHYLOCOCCAL INFECTION [None]
